FAERS Safety Report 15417391 (Version 11)
Quarter: 2021Q3

REPORT INFORMATION
  Report Type: Spontaneous
  Country: DE (occurrence: DE)
  Receive Date: 20180924
  Receipt Date: 20210913
  Transmission Date: 20211014
  Serious: Yes (Death, Hospitalization, Other)
  Sender: FDA-Public Use
  Company Number: DE-MYLANLABS-2018M1069628

PATIENT
  Sex: Male

DRUGS (30)
  1. CYTARABINE. [Suspect]
     Active Substance: CYTARABINE
     Dosage: 100 MG/M2/DAY, DAY 1 TO 7
     Route: 042
  2. MITOXANTRONE [Suspect]
     Active Substance: MITOXANTRONE HYDROCHLORIDE
     Dosage: 30 MG/M2/DAY I.V. DAYS 1 AND 5
     Route: 042
  3. IDARUBICIN HYDROCHLORIDE. [Concomitant]
     Active Substance: IDARUBICIN HYDROCHLORIDE
     Indication: ACUTE MYELOID LEUKAEMIA
     Dosage: 12 MILLIGRAM/SQ. METER, QD(DAYS 2, 4 AND 6)
     Route: 042
     Dates: start: 201405
  4. MELPHALAN. [Concomitant]
     Active Substance: MELPHALAN
     Indication: BONE MARROW CONDITIONING REGIMEN
  5. CYTARABINE. [Suspect]
     Active Substance: CYTARABINE
     Dosage: 2000 MILLIGRAM/SQ. METER, QD
     Route: 042
     Dates: start: 201408
  6. VORICONAZOLE. [Suspect]
     Active Substance: VORICONAZOLE
     Indication: ANTIFUNGAL TREATMENT
     Dosage: 6 MILLIGRAM/KILOGRAM, BID(LOADING DOSE, 12MG/KG EVERY DAY)
     Route: 042
     Dates: start: 201409, end: 201409
  7. VORICONAZOLE. [Suspect]
     Active Substance: VORICONAZOLE
     Dosage: 8 MG/KG/DAY, EVERY DAY
     Route: 042
     Dates: start: 201409, end: 201409
  8. ETOPOSIDE. [Suspect]
     Active Substance: ETOPOSIDE
     Indication: ACUTE MYELOID LEUKAEMIA
     Dosage: 100 MG/M2, QD, DAY 3 TO 7
     Route: 042
     Dates: start: 201405
  9. IDARUBICIN [Suspect]
     Active Substance: IDARUBICIN
     Indication: ACUTE MYELOID LEUKAEMIA
     Dosage: 12 MILLIGRAM/SQ. METER, QD (DAYS 2, 4 AND 6)
     Route: 065
  10. CASPOFUNGIN [Suspect]
     Active Substance: CASPOFUNGIN
     Dosage: 200 MG EVERYDAY
     Route: 042
     Dates: start: 201409
  11. VORICONAZOLE. [Suspect]
     Active Substance: VORICONAZOLE
     Dosage: 12 MILLIGRAM/KILOGRAM, QD (6 MG/KG/DAY, BID, LOADING DOSE, 12MG/KG EVERY DAY)
     Route: 042
     Dates: start: 201409, end: 201409
  12. AMPHOTERICIN B. [Suspect]
     Active Substance: AMPHOTERICIN B
     Indication: ANTIFUNGAL TREATMENT
     Dosage: 3 MILLIGRAM/KILOGRAM, QD(SINCE DAY ?6)
     Route: 042
     Dates: start: 201409, end: 201409
  13. ANTILYMPHOCYTE IMMUNOGLOBULIN [Concomitant]
     Active Substance: THYMOCYTE IMMUNE GLOBULIN NOS
     Indication: BONE MARROW CONDITIONING REGIMEN
     Dosage: 10 MG/KG/DAY, DAYS ?5 TO ?2
     Route: 042
     Dates: start: 201409
  14. CASPOFUNGIN [Suspect]
     Active Substance: CASPOFUNGIN
     Indication: ANTIFUNGAL TREATMENT
     Dosage: 70 MG, QD, (LOADING DOSE)
     Route: 042
     Dates: start: 201409, end: 201409
  15. CYTARABINE. [Suspect]
     Active Substance: CYTARABINE
     Dosage: 2000 MILLIGRAM/SQ. METER, QD(2000 MG/M2/DAY B.I.D., DAYS 1 AND 5  )
     Route: 042
     Dates: start: 201408
  16. CYTARABINE. [Suspect]
     Active Substance: CYTARABINE
     Dosage: 2000 MG/M2/DAY B.I.D., DAYS 1 AND 5
     Route: 042
     Dates: start: 201408
  17. POSACONAZOLE [Suspect]
     Active Substance: POSACONAZOLE
     Indication: ANTIFUNGAL PROPHYLAXIS
     Dosage: 200 MILLIGRAM, TID (600 MILLIGRAM, QD)
     Route: 048
     Dates: start: 201405
  18. POSACONAZOLE [Suspect]
     Active Substance: POSACONAZOLE
     Dosage: 600 MG EVERY DAY (ORAL SUSPENSION (200 MG PER OS P.O. THREE TIMES A DAY T.I.D.)
     Route: 048
  19. DACOGEN [Suspect]
     Active Substance: DECITABINE
     Indication: ACUTE MYELOID LEUKAEMIA
     Dosage: 20 MILLIGRAM/SQ. METER, QD(DAYS 1 TO 5)
     Route: 042
     Dates: start: 2014
  20. MELPHALAN. [Concomitant]
     Active Substance: MELPHALAN
     Indication: ACUTE MYELOID LEUKAEMIA
     Dosage: 150 MG/M2, ON DAY 2
     Route: 042
     Dates: start: 201409
  21. CASPOFUNGIN [Suspect]
     Active Substance: CASPOFUNGIN
     Dosage: 50 MILLIGRAM, QID (200 MILLIGRAM, QD)
     Route: 042
     Dates: start: 201409
  22. ETOPOSIDE. [Suspect]
     Active Substance: ETOPOSIDE
     Dosage: 100 MG/M2, QD, DAY 3 TO 7
     Route: 042
  23. MITOXANTRONE [Suspect]
     Active Substance: MITOXANTRONE HYDROCHLORIDE
     Indication: ACUTE MYELOID LEUKAEMIA
     Dosage: 30 MILLIGRAM/SQ. METER, QD, DAYS ?1 AND ?5
     Route: 042
     Dates: start: 201408
  24. AMPHOTERICIN B. [Suspect]
     Active Substance: AMPHOTERICIN B
     Indication: ASPERGILLUS INFECTION
     Dosage: UNK
  25. CYTARABINE. [Suspect]
     Active Substance: CYTARABINE
     Indication: ACUTE MYELOID LEUKAEMIA
     Dosage: 100 MG/M2/DAY, DAY 1 TO 7
     Route: 042
     Dates: start: 201405
  26. CYTARABINE. [Suspect]
     Active Substance: CYTARABINE
     Dosage: 2,000 MG/M2/DAY I.V. B.I.D., DAYS 1 AND 5)
     Route: 042
  27. VORICONAZOLE. [Suspect]
     Active Substance: VORICONAZOLE
     Indication: ASPERGILLUS INFECTION
     Dosage: 8 MILLIGRAM/KILOGRAM, QD
     Route: 042
     Dates: start: 201409, end: 201409
  28. POSACONAZOLE [Suspect]
     Active Substance: POSACONAZOLE
     Dosage: 600 MG EVERY DAY
     Route: 048
     Dates: start: 201405
  29. DACOGEN [Suspect]
     Active Substance: DECITABINE
     Dosage: 20 MG/M2/DAY I.V. DAYS 1 TO 5)
     Route: 042
  30. FLUDARABINE [Suspect]
     Active Substance: FLUDARABINE PHOSPHATE
     Indication: ACUTE MYELOID LEUKAEMIA
     Dosage: 30 MG/M2/DAY, DAYS ?6 TO ?2
     Route: 065
     Dates: start: 201409

REACTIONS (11)
  - Multiple organ dysfunction syndrome [Unknown]
  - Abscess fungal [Unknown]
  - Drug resistance [Unknown]
  - Aspergillus infection [Fatal]
  - Bronchopulmonary aspergillosis [Fatal]
  - Drug ineffective [Fatal]
  - Febrile neutropenia [Unknown]
  - Off label use [Unknown]
  - Cerebral aspergillosis [Fatal]
  - C-reactive protein increased [Unknown]
  - Septic shock [Unknown]

NARRATIVE: CASE EVENT DATE: 201408
